FAERS Safety Report 9771425 (Version 2)
Quarter: 2013Q4

REPORT INFORMATION
  Report Type: Report from Study
  Country: JP (occurrence: JP)
  Receive Date: 20131219
  Receipt Date: 20131219
  Transmission Date: 20140711
  Serious: Yes (Death, Hospitalization)
  Sender: FDA-Public Use
  Company Number: JP-MERCK-1203USA00995

PATIENT
  Age: 68 Year
  Sex: Female

DRUGS (11)
  1. ZOLINZA CAPSULES 100MG [Suspect]
     Indication: MYCOSIS FUNGOIDES
     Dosage: 300 MG, QD
     Route: 048
     Dates: start: 20120131, end: 20120214
  2. ZOLINZA CAPSULES 100MG [Suspect]
     Dosage: 300 MG, QD
     Route: 048
     Dates: start: 20120217, end: 20120219
  3. ZOLINZA CAPSULES 100MG [Suspect]
     Dosage: 200 MG, QD
     Route: 048
     Dates: start: 20120224, end: 20120227
  4. VEPESID [Concomitant]
     Indication: MYCOSIS FUNGOIDES
     Dosage: 25 MG, QD
     Route: 048
     Dates: start: 20110412, end: 20120125
  5. PREDONINE [Concomitant]
     Indication: MYCOSIS FUNGOIDES
     Dosage: 15 MG, TID
     Route: 048
     Dates: start: 20101228, end: 20120227
  6. BAKTAR [Concomitant]
     Indication: PNEUMOCYSTIS JIROVECII PNEUMONIA
     Dosage: 480 MG, QD
     Route: 048
     Dates: end: 20120227
  7. TAKEPRON [Concomitant]
     Indication: MYCOSIS FUNGOIDES
     Dosage: 15 MG, QD
     Route: 048
     Dates: end: 20120227
  8. BENET [Concomitant]
     Indication: OSTEOPOROSIS
     Dosage: 17.5 MG, QW
     Route: 048
     Dates: end: 20120227
  9. LAMISIL (TERBINAFINE) [Concomitant]
     Indication: MYCOSIS FUNGOIDES
     Dosage: 125 MG, QD
     Route: 048
     Dates: end: 20120227
  10. GABAPEN [Concomitant]
     Indication: MYCOSIS FUNGOIDES
     Dosage: 800 MG, BID
     Route: 048
     Dates: end: 20120227
  11. RIVOTRIL [Concomitant]
     Indication: MYCOSIS FUNGOIDES
     Dosage: 0.5 MG, QD
     Route: 048
     Dates: end: 20120227

REACTIONS (6)
  - Fibrin degradation products increased [Recovering/Resolving]
  - Fibrin D dimer increased [Recovering/Resolving]
  - Deep vein thrombosis [Unknown]
  - Decreased appetite [Recovering/Resolving]
  - Platelet count decreased [Recovered/Resolved]
  - Drowning [Fatal]
